FAERS Safety Report 8311191-4 (Version None)
Quarter: 2012Q2

REPORT INFORMATION
  Report Type: 
  Country: None (occurrence: None)
  Receive Date: 20120425
  Receipt Date: 20111209
  Transmission Date: 20120825
  Serious: Yes (Other)
  Sender: FDA-Public Use
  Company Number: US-MYLANLABS-2011S1022161

PATIENT
  Age: 62 Year
  Sex: Female
  Weight: 71.22 kg

DRUGS (2)
  1. NITROFURANTOIN MONOHYDRATE/MACROCRYSTALS [Suspect]
     Indication: URINARY TRACT INFECTION
     Route: 048
     Dates: start: 20111008, end: 20111012
  2. IBUPROFEN [Concomitant]
     Indication: HEADACHE

REACTIONS (3)
  - CHILLS [None]
  - HEPATITIS [None]
  - DIZZINESS [None]
